FAERS Safety Report 8313978-0 (Version None)
Quarter: 2012Q2

REPORT INFORMATION
  Report Type: 
  Country: None (occurrence: None)
  Receive Date: 20120426
  Receipt Date: 20120417
  Transmission Date: 20120825
  Serious: Yes (Other)
  Sender: FDA-Public Use
  Company Number: US-ASTRAZENECA-2011SE68653

PATIENT
  Age: 59 Year
  Sex: Male
  Weight: 108.9 kg

DRUGS (6)
  1. DEMEROL [Concomitant]
  2. URISSETTE K [Concomitant]
     Indication: NEPHROLITHIASIS
     Dosage: THREE TIMES A DAY
  3. FLEXERIL [Concomitant]
     Indication: BACK PAIN
     Dosage: PRN
  4. REQUIP [Concomitant]
     Indication: RESTLESS LEGS SYNDROME
  5. ZOMIG [Concomitant]
     Indication: HEADACHE
  6. NEXIUM [Suspect]
     Route: 048

REACTIONS (11)
  - OESOPHAGEAL STENOSIS [None]
  - COUGH [None]
  - SLEEP DISORDER DUE TO GENERAL MEDICAL CONDITION, INSOMNIA TYPE [None]
  - INTENTIONAL DRUG MISUSE [None]
  - VOMITING [None]
  - INTESTINAL OBSTRUCTION [None]
  - DIVERTICULITIS [None]
  - PAIN [None]
  - HERNIA [None]
  - GASTROOESOPHAGEAL REFLUX DISEASE [None]
  - CHOKING [None]
